FAERS Safety Report 13301432 (Version 1)
Quarter: 2017Q1

REPORT INFORMATION
  Report Type: Report from Study
  Country: TR (occurrence: TR)
  Receive Date: 20170307
  Receipt Date: 20170307
  Transmission Date: 20170428
  Serious: Yes (Death)
  Sender: FDA-Public Use
  Company Number: TR-ROCHE-1903369

PATIENT

DRUGS (1)
  1. ALTEPLASE [Suspect]
     Active Substance: ALTEPLASE
     Indication: ISCHAEMIC STROKE
     Dosage: 10 % OF THE TREATMENT AS BOLUS AND THE REMAINDER IN THE FORM OF INFUSION OVER ONE HOUR
     Route: 042

REACTIONS (1)
  - Haemorrhage intracranial [Fatal]
